FAERS Safety Report 7910380-8 (Version None)
Quarter: 2011Q4

REPORT INFORMATION
  Report Type: 
  Country: None (occurrence: None)
  Receive Date: 20111111
  Receipt Date: 20111109
  Transmission Date: 20120403
  Serious: Yes (Hospitalization)
  Sender: FDA-Public Use
  Company Number: KR-ROCHE-792925

PATIENT
  Sex: Female
  Weight: 53.1 kg

DRUGS (15)
  1. DOCETAXEL [Suspect]
     Indication: BREAST CANCER
     Dosage: LAST DOSE PRIOR TO SAE : 04/OCT/2011.
     Route: 042
  2. CISPLATIN [Suspect]
     Indication: BREAST CANCER
     Dosage: DOSE: 5 AUC LAST DOSE PRIOR TO SAE : 04/OCT/2011
     Route: 042
  3. RANIDINE [Concomitant]
  4. MAGNESIUM OXIDE [Concomitant]
     Dates: start: 20110706, end: 20110712
  5. DEXAMETHASONE [Concomitant]
  6. RANIDINE [Concomitant]
     Dosage: REPORTED AS RANITIDINE
     Dates: start: 20110706, end: 20110708
  7. RANIDINE [Concomitant]
  8. DEXAMETHASONE [Concomitant]
  9. DEXAMETHASONE [Concomitant]
     Dates: start: 20111004, end: 20111004
  10. RANIDINE [Concomitant]
     Dates: start: 20111004, end: 20111004
  11. CHLORPHENIRAMINE MALEATE [Concomitant]
     Dates: start: 20110706, end: 20110706
  12. AVASTIN [Suspect]
     Indication: BREAST CANCER
     Dosage: LLAST DOSE PRIOR TO SAE : 04/OCT/2011.
     Route: 042
  13. DEXAMETHASONE [Concomitant]
     Dates: start: 20110706, end: 20110708
  14. CHLORPHENIRAMINE MALEATE [Concomitant]
     Dates: start: 20111004, end: 20111004
  15. BISACODYL [Concomitant]
     Dosage: REPORTED AS: BISARODYL
     Dates: start: 20110706, end: 20110712

REACTIONS (2)
  - GINGIVITIS ULCERATIVE [None]
  - PERICORONITIS [None]
